FAERS Safety Report 6847464-1 (Version None)
Quarter: 2010Q3

REPORT INFORMATION
  Report Type: 
  Country: None (occurrence: None)
  Receive Date: 20100714
  Receipt Date: 20100706
  Transmission Date: 20110219
  Serious: Yes (Other)
  Sender: FDA-Public Use
  Company Number: 20108617

PATIENT
  Age: 10 Year
  Sex: Female

DRUGS (1)
  1. LIORESAL [Suspect]
     Indication: MUSCLE SPASTICITY
     Dosage: 110 MCG, DAILY, INTRATHECAL
     Route: 037

REACTIONS (5)
  - DEVICE LEAKAGE [None]
  - DEVICE OCCLUSION [None]
  - INFLAMMATION [None]
  - MUSCLE SPASMS [None]
  - SURGICAL PROCEDURE REPEATED [None]
